FAERS Safety Report 7208010-6 (Version None)
Quarter: 2010Q4

REPORT INFORMATION
  Report Type: 
  Country: None (occurrence: None)
  Receive Date: 20101230
  Receipt Date: 20101230
  Transmission Date: 20110411
  Serious: Yes (Other)
  Sender: FDA-Public Use
  Company Number: None

PATIENT
  Sex: Male
  Weight: 91.173 kg

DRUGS (1)
  1. ELAVIL [Suspect]
     Dosage: ONE QHS INJ
     Dates: end: 20010601

REACTIONS (7)
  - AGITATION [None]
  - CEREBRAL ATROPHY [None]
  - COGNITIVE DISORDER [None]
  - DILATATION VENTRICULAR [None]
  - DIZZINESS [None]
  - INSOMNIA [None]
  - NERVOUSNESS [None]
